FAERS Safety Report 23278749 (Version 2)
Quarter: 2023Q4

REPORT INFORMATION
  Report Type: Spontaneous
  Country: ES (occurrence: None)
  Receive Date: 20231208
  Receipt Date: 20231218
  Transmission Date: 20240109
  Serious: Yes (Other)
  Sender: FDA-Public Use
  Company Number: 2023A275290

PATIENT
  Age: 60 Year
  Sex: Male

DRUGS (1)
  1. BUDESONIDE\FORMOTEROL\GLYCOPYRRONIUM [Suspect]
     Active Substance: BUDESONIDE\FORMOTEROL\GLYCOPYRRONIUM
     Dosage: 5.0UG UNKNOWN
     Route: 055
     Dates: start: 20231130

REACTIONS (2)
  - Drowning [Recovering/Resolving]
  - Device malfunction [Unknown]
